FAERS Safety Report 5580722-X (Version None)
Quarter: 2008Q1

REPORT INFORMATION
  Report Type: 
  Country: None (occurrence: None)
  Receive Date: 20080103
  Receipt Date: 20071222
  Transmission Date: 20080703
  Serious: Yes (Hospitalization, Other)
  Sender: FDA-Public Use
  Company Number: US-PFIZER INC-2007092578

PATIENT
  Sex: Male
  Weight: 86.2 kg

DRUGS (4)
  1. CHANTIX [Suspect]
     Indication: SMOKING CESSATION THERAPY
     Dates: start: 20071018, end: 20071028
  2. LITHIUM [Concomitant]
     Dosage: DAILY DOSE:900MG-TEXT:600MG EVERY MORNING, 300MG EVERY BEDTIME
  3. SEROQUEL [Concomitant]
     Dosage: DAILY DOSE:250MG-TEXT:50MG DAILY AND 200MG AT BEDTIME
  4. NEURONTIN [Concomitant]
     Dosage: DAILY DOSE:300MG-TEXT:300MG AT BEDTIME

REACTIONS (11)
  - ACTIVITIES OF DAILY LIVING IMPAIRED [None]
  - DEPRESSION [None]
  - FLIGHT OF IDEAS [None]
  - HALLUCINATION, AUDITORY [None]
  - HYPOMANIA [None]
  - INSOMNIA [None]
  - IRRITABILITY [None]
  - MANIA [None]
  - PSYCHIATRIC DECOMPENSATION [None]
  - SELF-INJURIOUS IDEATION [None]
  - STRESS [None]
